FAERS Safety Report 7564683-X (Version None)
Quarter: 2011Q2

REPORT INFORMATION
  Report Type: 
  Country: None (occurrence: None)
  Receive Date: 20110622
  Receipt Date: 20100915
  Transmission Date: 20111010
  Serious: No
  Sender: FDA-Public Use
  Company Number: US-MYLANLABS-2010S1015688

PATIENT
  Age: 77 Year
  Sex: Female

DRUGS (8)
  1. CLOZAPINE [Suspect]
     Indication: SCHIZOAFFECTIVE DISORDER
     Route: 048
     Dates: start: 20000101
  2. OMEPRAZOLE [Concomitant]
  3. SERTRALINE HYDROCHLORIDE [Concomitant]
  4. LEVOTHYROXINE SODIUM [Concomitant]
  5. LORAZEPAM [Concomitant]
     Indication: ANXIETY
     Route: 048
  6. CLOZAPINE [Suspect]
     Route: 048
     Dates: start: 20000101
  7. SENNA [Concomitant]
  8. OYSCO D /01204201/ [Concomitant]

REACTIONS (1)
  - NEUTROPHIL COUNT INCREASED [None]
